FAERS Safety Report 8785895 (Version 2)
Quarter: 2015Q3

REPORT INFORMATION
  Report Type: Report from Study
  Country: US (occurrence: US)
  Receive Date: 20120914
  Receipt Date: 20150803
  Transmission Date: 20151125
  Serious: Yes (Death)
  Sender: FDA-Public Use
  Company Number: US-ROCHE-1127461

PATIENT
  Sex: Female

DRUGS (14)
  1. ARIMIDEX [Concomitant]
     Active Substance: ANASTROZOLE
     Route: 065
  2. DECADRON [Concomitant]
     Active Substance: DEXAMETHASONE
  3. NAVELBINE [Concomitant]
     Active Substance: VINORELBINE TARTRATE
     Route: 042
  4. DILAUDID [Concomitant]
     Active Substance: HYDROMORPHONE HYDROCHLORIDE
     Route: 065
  5. MS CONTIN [Concomitant]
     Active Substance: MORPHINE SULFATE
     Route: 065
  6. TAXOTERE [Concomitant]
     Active Substance: DOCETAXEL
  7. AREDIA [Concomitant]
     Active Substance: PAMIDRONATE DISODIUM
     Route: 065
  8. AVASTIN [Suspect]
     Active Substance: BEVACIZUMAB
     Indication: BREAST CANCER FEMALE
     Route: 065
  9. GRANISETRON [Concomitant]
     Active Substance: GRANISETRON
     Route: 065
  10. ZOLOFT [Concomitant]
     Active Substance: SERTRALINE HYDROCHLORIDE
  11. GEMZAR [Concomitant]
     Active Substance: GEMCITABINE HYDROCHLORIDE
  12. XELODA [Suspect]
     Active Substance: CAPECITABINE
     Indication: BREAST CANCER FEMALE
     Route: 065
  13. THIOTEPA. [Concomitant]
     Active Substance: THIOTEPA
  14. HYDROMORPHONE [Concomitant]
     Active Substance: HYDROMORPHONE
     Route: 065

REACTIONS (20)
  - Off label use [Unknown]
  - Pelvic discomfort [Unknown]
  - Pain [Unknown]
  - Dysaesthesia [Unknown]
  - Hypoaesthesia [Unknown]
  - Death [Fatal]
  - Nausea [Unknown]
  - Back pain [Unknown]
  - Abdominal pain [Unknown]
  - Fatigue [Unknown]
  - Alopecia [Unknown]
  - Pyrexia [Unknown]
  - Generalised erythema [Unknown]
  - Tenderness [Unknown]
  - Headache [Unknown]
  - Peripheral swelling [Unknown]
  - Jaundice [Unknown]
  - Arthralgia [Unknown]
  - Malaise [Unknown]
  - Urinary tract infection [Unknown]
